FAERS Safety Report 24592186 (Version 1)
Quarter: 2024Q4

REPORT INFORMATION
  Report Type: Spontaneous
  Country: GB (occurrence: GB)
  Receive Date: 20241108
  Receipt Date: 20241108
  Transmission Date: 20250114
  Serious: Yes (Other)
  Sender: TEVA
  Company Number: GB-MHRA-TPP33637447C1437732YC1730222920457

PATIENT
  Age: 11 Year
  Sex: Female
  Weight: 40 kg

DRUGS (3)
  1. MONTELUKAST [Suspect]
     Active Substance: MONTELUKAST
     Indication: Ill-defined disorder
     Dosage: TAKE ONE AT NIGHT; DAILY DOSE: 5MG
     Route: 065
     Dates: start: 20240212, end: 20241029
  2. ALBUTEROL [Concomitant]
     Active Substance: ALBUTEROL
     Indication: Ill-defined disorder
     Dosage: INHALE 2 DOSES AS NEEDED FOR ASTHMA - GOOD CONT...; DURATION: 261 DAYS
     Route: 055
     Dates: start: 20240212, end: 20241029
  3. BUDESONIDE\FORMOTEROL FUMARATE [Concomitant]
     Active Substance: BUDESONIDE\FORMOTEROL FUMARATE
     Indication: Ill-defined disorder
     Dosage: 1 PUFF TWICE A DAY. AN ADDITIONAL PUFF MAY BE T...
     Route: 055
     Dates: start: 20241029

REACTIONS (1)
  - Depressed mood [Recovered/Resolved]
